FAERS Safety Report 6399964-9 (Version None)
Quarter: 2009Q4

REPORT INFORMATION
  Report Type: 
  Country: None (occurrence: None)
  Receive Date: 20091008
  Receipt Date: 20091008
  Transmission Date: 20100525
  Serious: No
  Sender: FDA-Public Use
  Company Number: None

PATIENT
  Age: 76 Year
  Sex: Female
  Weight: 69.4 kg

DRUGS (2)
  1. CIPRO [Suspect]
     Indication: PREOPERATIVE CARE
     Dosage: 400MG ONCE IV DRIP
     Route: 041
     Dates: start: 20090902, end: 20090902
  2. CIPRO [Suspect]
     Indication: PROPHYLAXIS
     Dosage: 400MG ONCE IV DRIP
     Route: 041
     Dates: start: 20090902, end: 20090902

REACTIONS (3)
  - ERYTHEMA [None]
  - INFUSION SITE PAIN [None]
  - INJECTION SITE STREAKING [None]
